FAERS Safety Report 19205699 (Version 1)
Quarter: 2021Q2

REPORT INFORMATION
  Report Type: Spontaneous
  Country: US (occurrence: US)
  Receive Date: 20210503
  Receipt Date: 20210503
  Transmission Date: 20210717
  Serious: No
  Sender: FDA-Public Use
  Company Number: US-FARMAPROD-202102-0236

PATIENT
  Age: 51 Year
  Sex: Female

DRUGS (3)
  1. OXERVATE [Suspect]
     Active Substance: CENEGERMIN-BKBJ
     Indication: LACRIMATION DECREASED
     Route: 047
     Dates: start: 20210204, end: 20210216
  2. INSULIN [Concomitant]
     Active Substance: INSULIN NOS
     Indication: TYPE 1 DIABETES MELLITUS
  3. METHOTREXATE. [Concomitant]
     Active Substance: METHOTREXATE
     Indication: RHEUMATOID ARTHRITIS

REACTIONS (4)
  - Headache [Recovered/Resolved]
  - Eye pain [Not Recovered/Not Resolved]
  - Therapy interrupted [Unknown]
  - Photophobia [Unknown]

NARRATIVE: CASE EVENT DATE: 202102
